FAERS Safety Report 9169912 (Version 1)
Quarter: 2013Q1

REPORT INFORMATION
  Report Type: Spontaneous
  Country: US (occurrence: None)
  Receive Date: 20130314
  Receipt Date: 20130314
  Transmission Date: 20140127
  Serious: Yes (Other)
  Sender: FDA-Public Use
  Company Number: None

PATIENT
  Sex: 0

DRUGS (2)
  1. NITROUS OXIDE [Suspect]
     Indication: TOOTH DISORDER
     Dosage: NO DOSAGE INFO. LOT NUMBER G921303121
  2. NITROUS OXIDE [Suspect]
     Indication: ANAESTHESIA
     Dosage: NO DOSAGE INFO. LOT NUMBER G921303121

REACTIONS (1)
  - Thermal burn [None]
